FAERS Safety Report 19280483 (Version 1)
Quarter: 2021Q2

REPORT INFORMATION
  Report Type: Spontaneous
  Country: US (occurrence: US)
  Receive Date: 20210521
  Receipt Date: 20210521
  Transmission Date: 20210717
  Serious: Yes (Other)
  Sender: FDA-Public Use
  Company Number: US-DRREDDYS-USA/USA/21/0135563

PATIENT
  Age: 19 Year
  Sex: Female

DRUGS (2)
  1. ZENATANE [Suspect]
     Active Substance: ISOTRETINOIN
     Dosage: RMA ISSUE DATE: 9 FEBRUARY 2021 12:00:00 AM, 11 MARCH 2021 12:00:00 AM, 14 APRIL 2021 12:00:00 AM
  2. ZENATANE [Suspect]
     Active Substance: ISOTRETINOIN
     Indication: PRODUCT USED FOR UNKNOWN INDICATION
     Dosage: RMA ISSUE DATE: 7 JANUARY 2021 12:00:00 AM, 9 FEBRUARY 2021 12:00:00 AM, 11 MARCH 2021 12:00:00 AM,

REACTIONS (1)
  - Ligament rupture [Unknown]
